FAERS Safety Report 21578659 (Version 4)
Quarter: 2023Q2

REPORT INFORMATION
  Report Type: Report from Study
  Country: AT (occurrence: AT)
  Receive Date: 20221110
  Receipt Date: 20230613
  Transmission Date: 20230722
  Serious: Yes (Other)
  Sender: FDA-Public Use
  Company Number: AT-002147023-NVSC2022AT249604

PATIENT

DRUGS (8)
  1. RUXOLITINIB [Suspect]
     Active Substance: RUXOLITINIB
     Indication: Myelofibrosis
     Dosage: UNK
     Route: 065
     Dates: start: 20181106, end: 20201213
  2. RUXOLITINIB [Suspect]
     Active Substance: RUXOLITINIB
     Indication: Primary myelofibrosis
     Dosage: 10 MG, BID
     Route: 048
     Dates: start: 20201214
  3. NAVITOCLAX [Suspect]
     Active Substance: NAVITOCLAX
     Indication: Myelofibrosis
     Dosage: 150 MG, QD
     Route: 048
     Dates: start: 20201214
  4. ALLOPURINOL [Concomitant]
     Active Substance: ALLOPURINOL
     Indication: Hyperuricaemia
     Dosage: 300 MG, QD
     Route: 065
     Dates: start: 2005
  5. PREGABALIN [Concomitant]
     Active Substance: PREGABALIN
     Indication: Neuropathy peripheral
     Dosage: 25 MG, QD
     Route: 065
     Dates: start: 202011
  6. MAGNESIUM OXIDE [Concomitant]
     Active Substance: MAGNESIUM OXIDE
     Indication: Neuropathy peripheral
     Dosage: 1 DOSAGE FORM, QD
     Route: 065
     Dates: start: 20210208
  7. FOLIC ACID [Concomitant]
     Active Substance: FOLIC ACID
     Indication: Folate deficiency
     Dosage: 5 MG, QD
     Route: 065
     Dates: start: 20210406
  8. MAGNESIUM [Concomitant]
     Active Substance: MAGNESIUM
     Indication: Neuropathy peripheral
     Dosage: 1 DOSAGE FORM, QD
     Route: 065
     Dates: start: 20210208

REACTIONS (6)
  - SARS-CoV-2 test positive [Recovered/Resolved]
  - Infection [Unknown]
  - Second primary malignancy [Recovered/Resolved]
  - Squamous cell carcinoma [Recovered/Resolved]
  - Weight decreased [Unknown]
  - Diarrhoea [Unknown]

NARRATIVE: CASE EVENT DATE: 20210109
